FAERS Safety Report 4814774-9 (Version None)
Quarter: 2005Q4

REPORT INFORMATION
  Report Type: 
  Country: None (occurrence: None)
  Receive Date: 20051028
  Receipt Date: 20041227
  Transmission Date: 20060501
  Serious: No
  Sender: FDA-Public Use
  Company Number: US-GLAXOSMITHKLINE-A0538539A

PATIENT
  Age: 55 Year
  Sex: Male

DRUGS (4)
  1. ADVAIR DISKUS 100/50 [Suspect]
     Indication: ASTHMA
     Dosage: 1PUFF PER DAY
     Route: 055
     Dates: start: 20010101, end: 20041210
  2. PROVENTIL [Concomitant]
  3. NASONEX [Concomitant]
  4. NAPROSYN [Concomitant]

REACTIONS (1)
  - HYPOAESTHESIA [None]
